FAERS Safety Report 14031661 (Version 1)
Quarter: 2017Q4

REPORT INFORMATION
  Report Type: Spontaneous
  Country: CN (occurrence: US)
  Receive Date: 20171003
  Receipt Date: 20171003
  Transmission Date: 20180321
  Serious: Yes (Other)
  Sender: FDA-Public Use
  Company Number: US-UNICHEM LABORATORIES LIMITED-UCM201709-000238

PATIENT
  Age: 51 Year
  Sex: Male

DRUGS (2)
  1. ENALPRIL [Concomitant]
     Indication: HYPERTENSION
  2. LOSARTAN POTASSIUM 50 MG TABLET [Suspect]
     Active Substance: LOSARTAN POTASSIUM
     Indication: ESSENTIAL HYPERTENSION
     Dosage: 100 TABLETS

REACTIONS (6)
  - Intestinal angioedema [Recovered/Resolved]
  - Diarrhoea [Recovered/Resolved]
  - Erythema [Recovered/Resolved]
  - Peripheral swelling [Recovered/Resolved]
  - Scrotal swelling [Recovered/Resolved]
  - Abdominal pain [Recovered/Resolved]
